FAERS Safety Report 22811057 (Version 8)
Quarter: 2024Q1

REPORT INFORMATION
  Report Type: Report from Study
  Country: US (occurrence: US)
  Receive Date: 20230810
  Receipt Date: 20240219
  Transmission Date: 20240410
  Serious: Yes (Hospitalization, Other)
  Sender: FDA-Public Use
  Company Number: US-ABBVIE-5334309

PATIENT
  Sex: Male

DRUGS (13)
  1. VENCLEXTA [Suspect]
     Active Substance: VENETOCLAX
     Indication: Chronic myelomonocytic leukaemia
     Dosage: FORM STRENGTH WAS 100 MILLIGRAM?DOSE TAKE ONE TABLET DAILY ON DAYS 1-14 OUT OF A 28 DAY CYCLE?LAS...
     Route: 048
     Dates: start: 20230606
  2. VENCLEXTA [Suspect]
     Active Substance: VENETOCLAX
     Indication: Chronic myelomonocytic leukaemia
     Dosage: FORM STRENGTH: 100 MILLIGRAM?LAST ADMIN DATE: JUN 2023
     Route: 048
     Dates: start: 202306
  3. VENCLEXTA [Suspect]
     Active Substance: VENETOCLAX
     Indication: Chronic myelomonocytic leukaemia
     Dosage: FORM STRENGTH: 100 MILLIGRAM
     Route: 048
     Dates: start: 20230607
  4. VENCLEXTA [Suspect]
     Active Substance: VENETOCLAX
     Indication: Chronic myelomonocytic leukaemia
     Dosage: FORM STRENGTH: 100 MILLIGRAM?LAST ADMIN DATE: JUN 2023
     Route: 048
     Dates: start: 202306
  5. VENCLEXTA [Suspect]
     Active Substance: VENETOCLAX
     Indication: Chronic myelomonocytic leukaemia
     Route: 048
  6. XOSPATA [Suspect]
     Active Substance: GILTERITINIB
     Indication: Chronic myelomonocytic leukaemia
     Dosage: FORM STRENGTH: 80 MILLIGRAM
     Route: 048
     Dates: start: 20230607, end: 202310
  7. XOSPATA [Suspect]
     Active Substance: GILTERITINIB
     Indication: Chronic myelomonocytic leukaemia
     Route: 065
     Dates: start: 202310
  8. XOSPATA [Suspect]
     Active Substance: GILTERITINIB
     Indication: Chronic myelomonocytic leukaemia
     Dosage: LAST ADMIN DATE- JUN 2023
     Route: 065
     Dates: start: 20230606
  9. LEVAQUIN [Concomitant]
     Active Substance: LEVOFLOXACIN
     Indication: Product used for unknown indication
  10. VALTREX [Concomitant]
     Active Substance: VALACYCLOVIR HYDROCHLORIDE
     Indication: Product used for unknown indication
  11. FINASTERIDE [Concomitant]
     Active Substance: FINASTERIDE
     Indication: Product used for unknown indication
  12. AZACITIDINE [Suspect]
     Active Substance: AZACITIDINE
     Indication: Chronic myelomonocytic leukaemia
     Dosage: 1 DF ONCE DAILY (DAY1-5 )
     Route: 065
  13. LEVOTHYROXINE [Concomitant]
     Active Substance: LEVOTHYROXINE\LEVOTHYROXINE SODIUM
     Indication: Product used for unknown indication

REACTIONS (9)
  - Platelet count decreased [Recovered/Resolved]
  - Platelet count decreased [Recovered/Resolved]
  - Fall [Unknown]
  - Hospitalisation [Unknown]
  - Eye infection [Unknown]
  - White blood cell count decreased [Unknown]
  - Head injury [Unknown]
  - Off label use [Unknown]
  - Depressed mood [Unknown]

NARRATIVE: CASE EVENT DATE: 20230101
